FAERS Safety Report 7241112-7 (Version None)
Quarter: 2011Q1

REPORT INFORMATION
  Report Type: 
  Country: None (occurrence: None)
  Receive Date: 20110113
  Receipt Date: 20110103
  Transmission Date: 20110831
  Serious: Yes (Hospitalization)
  Sender: FDA-Public Use
  Company Number: WAES 1101USA00085

PATIENT
  Age: 33 Year
  Sex: Male
  Weight: 69.4003 kg

DRUGS (8)
  1. TAB RALTEGRAVIR 400 MG [Suspect]
     Indication: HIV INFECTION
     Dosage: 400 MG/BID/PO
     Route: 048
     Dates: start: 20101229, end: 20101230
  2. AZITHROMYCIN [Concomitant]
  3. TAB DARUNAVIR 400 MG [Suspect]
     Indication: HIV INFECTION
     Dosage: 800 MG/DAILY/PO
     Route: 048
     Dates: start: 20101229, end: 20101230
  4. ALEVE [Concomitant]
  5. CENTRUM [Concomitant]
  6. RANITIDINE [Concomitant]
  7. RITONAVIR [Suspect]
     Indication: HIV INFECTION
     Dosage: 100 MG/DAILY/PO
     Route: 048
     Dates: start: 20101229, end: 20101230
  8. DAPSONE [Suspect]
     Indication: INFECTION PROPHYLAXIS
     Dosage: 100 MG/DAILY/PO
     Route: 048
     Dates: start: 20101217, end: 20101230

REACTIONS (14)
  - HEPATIC ENZYME INCREASED [None]
  - RENAL ATROPHY [None]
  - FUNGAL INFECTION [None]
  - TREATMENT NONCOMPLIANCE [None]
  - INJURY [None]
  - ABDOMINAL DISTENSION [None]
  - TUBERCULOSIS [None]
  - PAIN [None]
  - VOMITING [None]
  - PYELOCALIECTASIS [None]
  - CONDITION AGGRAVATED [None]
  - RASH ERYTHEMATOUS [None]
  - PYREXIA [None]
  - PATHOGEN RESISTANCE [None]
